FAERS Safety Report 19092808 (Version 2)
Quarter: 2021Q2

REPORT INFORMATION
  Report Type: Spontaneous
  Country: US (occurrence: US)
  Receive Date: 20210405
  Receipt Date: 20210603
  Transmission Date: 20210717
  Serious: No
  Sender: FDA-Public Use
  Company Number: US-TOLMAR, INC.-21US026141

PATIENT
  Age: 9 Year
  Sex: Female

DRUGS (1)
  1. ELIGARD [Suspect]
     Active Substance: LEUPROLIDE ACETATE
     Indication: PRECOCIOUS PUBERTY
     Dosage: 45 MG, Q 6 MONTH
     Route: 065
     Dates: start: 20210316

REACTIONS (3)
  - Product administration error [Unknown]
  - Syringe issue [Unknown]
  - Off label use [Unknown]

NARRATIVE: CASE EVENT DATE: 20210316
